FAERS Safety Report 9681808 (Version 9)
Quarter: 2021Q1

REPORT INFORMATION
  Report Type: Spontaneous
  Country: US (occurrence: US)
  Receive Date: 20131111
  Receipt Date: 20210108
  Transmission Date: 20210420
  Serious: Yes (Other)
  Sender: FDA-Public Use
  Company Number: US-PFIZER INC-2013319968

PATIENT
  Age: 61 Year
  Sex: Female
  Weight: 48.07 kg

DRUGS (9)
  1. DILANTIN?125 [Suspect]
     Active Substance: PHENYTOIN
     Dosage: UNK, 3X/DAY
     Route: 048
  2. MYSOLINE [Concomitant]
     Active Substance: PRIMIDONE
     Dosage: UNK
  3. SYNTHROID [Concomitant]
     Active Substance: LEVOTHYROXINE SODIUM
     Dosage: 0.05 MG
     Route: 048
  4. VALIUM [Concomitant]
     Active Substance: DIAZEPAM
     Indication: SEIZURE
     Dosage: UNK, 3X/DAY (5/8 OF A TEASPOON, THREE TIMES A DAY)
     Route: 048
     Dates: start: 1976
  5. DILANTIN?125 [Suspect]
     Active Substance: PHENYTOIN
     Indication: SEIZURE
     Dosage: 125 MG, UNK
     Route: 048
     Dates: start: 1974
  6. SYNTHROID [Concomitant]
     Active Substance: LEVOTHYROXINE SODIUM
     Indication: AUTOIMMUNE THYROIDITIS
     Dosage: UNK
     Route: 048
     Dates: start: 1976
  7. SYNTHROID [Concomitant]
     Active Substance: LEVOTHYROXINE SODIUM
     Dosage: 75 UG, 1X/DAY
     Route: 048
  8. DILANTIN?125 [Suspect]
     Active Substance: PHENYTOIN
     Dosage: UNK (ONE TEASPOON)
     Route: 048
  9. DILANTIN?125 [Suspect]
     Active Substance: PHENYTOIN
     Dosage: UNK, 3X/DAY (5/8 OF A TEASPOON, THREE TIMES A DAY)
     Route: 048

REACTIONS (8)
  - Drug ineffective [Unknown]
  - Vomiting [Unknown]
  - Product complaint [Unknown]
  - Visual impairment [Unknown]
  - Product container issue [Unknown]
  - Malabsorption [Unknown]
  - Thyroid disorder [Unknown]
  - Rubber sensitivity [Unknown]

NARRATIVE: CASE EVENT DATE: 2007
